FAERS Safety Report 5032353-8 (Version None)
Quarter: 2006Q2

REPORT INFORMATION
  Report Type: 
  Country: None (occurrence: None)
  Receive Date: 20060621
  Receipt Date: 20060621
  Transmission Date: 20061013
  Serious: Yes (Other)
  Sender: FDA-Public Use
  Company Number: None

PATIENT
  Age: 77 Year
  Sex: Female
  Weight: 66.2252 kg

DRUGS (1)
  1. TYGACIL [Suspect]
     Indication: ACINETOBACTER BACTERAEMIA
     Dosage: 50 MG Q12 H IV BOLUS
     Route: 040
     Dates: start: 20060616, end: 20060619

REACTIONS (5)
  - BLISTER [None]
  - DRUG HYPERSENSITIVITY [None]
  - PRURITUS [None]
  - RASH ERYTHEMATOUS [None]
  - SKIN EXFOLIATION [None]
